FAERS Safety Report 6643191-4 (Version None)
Quarter: 2010Q1

REPORT INFORMATION
  Report Type: 
  Country: None (occurrence: None)
  Receive Date: 20100319
  Receipt Date: 20100312
  Transmission Date: 20100710
  Serious: Yes (Hospitalization)
  Sender: FDA-Public Use
  Company Number: PHHO2010AU01825

PATIENT
  Sex: Male

DRUGS (3)
  1. TASIGNA [Suspect]
     Indication: CHRONIC MYELOID LEUKAEMIA
     Dosage: 400 MG, BID
     Dates: start: 20090713
  2. STI571/CGP57148B T35717+TAB [Suspect]
     Indication: CHRONIC MYELOID LEUKAEMIA
     Dosage: UNK
     Dates: start: 20090330, end: 20090627
  3. AVAPRO [Concomitant]

REACTIONS (4)
  - ATRIAL FIBRILLATION [None]
  - CARDIOMEGALY [None]
  - MYOCARDIAL ISCHAEMIA [None]
  - PRESYNCOPE [None]
